FAERS Safety Report 13554212 (Version 1)
Quarter: 2017Q2

REPORT INFORMATION
  Report Type: Spontaneous
  Country: US (occurrence: US)
  Receive Date: 20170517
  Receipt Date: 20170517
  Transmission Date: 20170830
  Serious: Yes (Other)
  Sender: FDA-Public Use
  Company Number: US-PERRIGO-17US023396

PATIENT
  Age: 51 Year
  Sex: Male

DRUGS (1)
  1. IBUPROFEN. [Suspect]
     Active Substance: IBUPROFEN
     Indication: PAIN
     Dosage: 800 MG DAILY
     Route: 065

REACTIONS (2)
  - Melaena [Unknown]
  - Haematemesis [Unknown]
